FAERS Safety Report 19482159 (Version 5)
Quarter: 2021Q3

REPORT INFORMATION
  Report Type: Spontaneous
  Country: CA (occurrence: CA)
  Receive Date: 20210701
  Receipt Date: 20210928
  Transmission Date: 20211014
  Serious: Yes (Other)
  Sender: FDA-Public Use
  Company Number: CA-CELLTRION INC.-2021CA008615

PATIENT

DRUGS (3)
  1. INFLECTRA [Suspect]
     Active Substance: INFLIXIMAB-DYYB
     Dosage: 400 MG, 2, 6, THEN EVERY 8 WEEKS
     Route: 042
     Dates: start: 20210823
  2. INFLECTRA [Suspect]
     Active Substance: INFLIXIMAB-DYYB
     Indication: CROHN^S DISEASE
     Dosage: 400 MG, 0, 2, 6, THEN EVERY 8 WEEKS
     Route: 042
     Dates: start: 20210601, end: 20210616
  3. INFLECTRA [Suspect]
     Active Substance: INFLIXIMAB-DYYB
     Dosage: 400 MG, 2, 6, THEN EVERY 8 WEEKS
     Route: 042
     Dates: start: 20210707

REACTIONS (18)
  - Blood pressure diastolic decreased [Unknown]
  - Malaise [Recovering/Resolving]
  - Headache [Recovering/Resolving]
  - Arthralgia [Unknown]
  - Heart rate decreased [Unknown]
  - Seizure [Unknown]
  - Fatigue [Recovering/Resolving]
  - Flatulence [Unknown]
  - Pain [Recovering/Resolving]
  - Vomiting [Recovering/Resolving]
  - Sleep disorder [Unknown]
  - Abdominal pain [Recovered/Resolved]
  - Inappropriate schedule of product administration [Unknown]
  - Influenza [Recovering/Resolving]
  - Nausea [Recovering/Resolving]
  - Condition aggravated [Unknown]
  - Impaired work ability [Unknown]
  - Off label use [Unknown]

NARRATIVE: CASE EVENT DATE: 2021
